FAERS Safety Report 4888953-9 (Version None)
Quarter: 2005Q4

REPORT INFORMATION
  Report Type: 
  Country: None (occurrence: None)
  Receive Date: 20051216
  Receipt Date: 20050720
  Transmission Date: 20060501
  Serious: No
  Sender: FDA-Public Use
  Company Number: USA0507103340

PATIENT
  Sex: Male
  Weight: 123 kg

DRUGS (2)
  1. CIALIS [Suspect]
     Dosage: 20 MG
     Dates: start: 20050101
  2. MOTRIN [Concomitant]

REACTIONS (1)
  - DRUG INEFFECTIVE [None]
